FAERS Safety Report 18731704 (Version 1)
Quarter: 2021Q1

REPORT INFORMATION
  Report Type: Spontaneous
  Country: US (occurrence: US)
  Receive Date: 20210112
  Receipt Date: 20210112
  Transmission Date: 20210419
  Serious: No
  Sender: FDA-Public Use
  Company Number: US-BEH-2021126847

PATIENT
  Sex: Male

DRUGS (1)
  1. HIZENTRA [Suspect]
     Active Substance: HUMAN IMMUNOGLOBULIN G
     Indication: HYPOGAMMAGLOBULINAEMIA
     Dosage: 4 GRAM, QOW
     Route: 058
     Dates: start: 202002

REACTIONS (3)
  - Attention deficit hyperactivity disorder [Unknown]
  - Psychomotor hyperactivity [Unknown]
  - Energy increased [Unknown]
